FAERS Safety Report 16877772 (Version 3)
Quarter: 2019Q4

REPORT INFORMATION
  Report Type: Spontaneous
  Country: US (occurrence: US)
  Receive Date: 20191002
  Receipt Date: 20191113
  Transmission Date: 20200122
  Serious: Yes (Death, Hospitalization, Other)
  Sender: FDA-Public Use
  Company Number: US-PFIZER INC-2019424371

PATIENT
  Age: 68 Year
  Sex: Female
  Weight: 63.5 kg

DRUGS (1)
  1. ALPRAZOLAM. [Suspect]
     Active Substance: ALPRAZOLAM
     Indication: ANXIETY
     Dosage: 0.5 MG, 4X/DAY
     Route: 048
     Dates: start: 20160712

REACTIONS (2)
  - Suicide attempt [Unknown]
  - Completed suicide [Fatal]

NARRATIVE: CASE EVENT DATE: 20190630
